FAERS Safety Report 24299357 (Version 1)
Quarter: 2024Q3

REPORT INFORMATION
  Report Type: Report from Study
  Country: GB (occurrence: GB)
  Receive Date: 20240909
  Receipt Date: 20240909
  Transmission Date: 20241017
  Serious: Yes (Other)
  Sender: TEVA
  Company Number: GB-TEVA-VS-3239926

PATIENT
  Age: 35 Year
  Sex: Female

DRUGS (1)
  1. COPAXONE [Suspect]
     Active Substance: GLATIRAMER ACETATE
     Indication: Multiple sclerosis
     Dosage: TIME INTERVAL: 0.33333333 WEEKS
     Route: 058
     Dates: start: 2020

REACTIONS (11)
  - Insomnia [Unknown]
  - Vomiting projectile [Unknown]
  - Injection site bruising [Unknown]
  - Hyperhidrosis [Unknown]
  - Injection site discolouration [Unknown]
  - Chills [Unknown]
  - Dizziness [Unknown]
  - Injection site mass [Unknown]
  - Injection site discomfort [Unknown]
  - Erythema [Unknown]
  - Facial discomfort [Unknown]

NARRATIVE: CASE EVENT DATE: 20240801
